FAERS Safety Report 8163387-2 (Version None)
Quarter: 2012Q1

REPORT INFORMATION
  Report Type: 
  Country: None (occurrence: None)
  Receive Date: 20120221
  Receipt Date: 20120209
  Transmission Date: 20120608
  Serious: Yes (Death)
  Sender: FDA-Public Use
  Company Number: GER/ITL/12/0023050

PATIENT
  Age: 87 Year
  Sex: Male

DRUGS (7)
  1. CLOPIDEGREL [Suspect]
     Indication: THROMBOSIS IN DEVICE
     Dosage: 75 MG, ORAL
     Route: 048
     Dates: start: 20120130, end: 20120205
  2. METOPROLOL TARTRATE [Concomitant]
  3. ATORVASTATIN CALCIUM [Concomitant]
  4. LANSOPRAZOLE [Concomitant]
  5. RAMIPRIL [Concomitant]
  6. ASPIRIN [Concomitant]
  7. SERENASE (MEPROBAMATE) [Concomitant]

REACTIONS (3)
  - ELECTROCARDIOGRAM ST SEGMENT ELEVATION [None]
  - THROMBOSIS IN DEVICE [None]
  - CARDIAC ARREST [None]
